FAERS Safety Report 11089104 (Version 1)
Quarter: 2015Q2

REPORT INFORMATION
  Report Type: Spontaneous
  Country: ES (occurrence: ES)
  Receive Date: 20150505
  Receipt Date: 20150505
  Transmission Date: 20150821
  Serious: Yes (Other)
  Sender: FDA-Public Use
  Company Number: ES-ROCHE-1571128

PATIENT
  Age: 26 Year
  Sex: Female

DRUGS (1)
  1. AVASTIN [Suspect]
     Active Substance: BEVACIZUMAB
     Indication: NEUROFIBROMATOSIS
     Route: 065

REACTIONS (7)
  - Hypersensitivity vasculitis [Unknown]
  - Pyrexia [Unknown]
  - Diarrhoea [Unknown]
  - Proteinuria [Unknown]
  - Polyserositis [Unknown]
  - Arthralgia [Unknown]
  - Abdominal pain [Unknown]
